FAERS Safety Report 22853662 (Version 3)
Quarter: 2023Q4

REPORT INFORMATION
  Report Type: Report from Study
  Country: FR (occurrence: FR)
  Receive Date: 20230823
  Receipt Date: 20231115
  Transmission Date: 20240110
  Serious: Yes (Hospitalization)
  Sender: FDA-Public Use
  Company Number: FR-SA-SAC20230818001670

PATIENT
  Age: 53 Year
  Sex: Female

DRUGS (8)
  1. ISATUXIMAB [Suspect]
     Active Substance: ISATUXIMAB
     Indication: Plasma cell myeloma
     Dosage: 640 MG, QD
     Route: 042
     Dates: start: 20221116, end: 20221116
  2. ISATUXIMAB [Suspect]
     Active Substance: ISATUXIMAB
     Dosage: 640 MG, QD
     Route: 042
     Dates: start: 20230813, end: 20230813
  3. CARFILZOMIB [Suspect]
     Active Substance: CARFILZOMIB
     Indication: Plasma cell myeloma
     Dosage: 35.2 MG, QD
     Route: 042
     Dates: start: 20221116, end: 20221116
  4. CARFILZOMIB [Suspect]
     Active Substance: CARFILZOMIB
     Dosage: 98 MG, QD
     Route: 042
     Dates: start: 20230813, end: 20230813
  5. LENALIDOMIDE [Suspect]
     Active Substance: LENALIDOMIDE
     Indication: Plasma cell myeloma
     Dosage: 25 MG, QD
     Route: 048
     Dates: start: 20221116, end: 20221116
  6. LENALIDOMIDE [Suspect]
     Active Substance: LENALIDOMIDE
     Dosage: 25 MG, QD
     Route: 048
     Dates: start: 20230813, end: 20230813
  7. DEXAMETHASONE [Suspect]
     Active Substance: DEXAMETHASONE
     Indication: Plasma cell myeloma
     Dosage: 40 MG, QD, D1,D3, D4, D5
     Route: 048
     Dates: start: 20221116, end: 20221116
  8. DEXAMETHASONE [Suspect]
     Active Substance: DEXAMETHASONE
     Dosage: 40 MG, QD, D1,D3, D4, D5
     Route: 048
     Dates: start: 20230813, end: 20230813

REACTIONS (1)
  - Colitis [Recovered/Resolved]

NARRATIVE: CASE EVENT DATE: 20230809
